FAERS Safety Report 16579635 (Version 2)
Quarter: 2020Q1

REPORT INFORMATION
  Report Type: Report from Study
  Country: US (occurrence: US)
  Receive Date: 20190716
  Receipt Date: 20200217
  Transmission Date: 20200409
  Serious: No
  Sender: FDA-Public Use
  Company Number: US-ALEXION PHARMACEUTICALS INC.-A201910524

PATIENT
  Sex: Female

DRUGS (1)
  1. SOLIRIS [Suspect]
     Active Substance: ECULIZUMAB
     Indication: MYASTHENIA GRAVIS
     Dosage: UNK
     Route: 065
     Dates: end: 201912

REACTIONS (8)
  - Muscular weakness [Unknown]
  - Musculoskeletal pain [Unknown]
  - Back pain [Unknown]
  - Head lag [Unknown]
  - Nausea [Unknown]
  - Painful respiration [Unknown]
  - Dizziness [Unknown]
  - Vomiting [Unknown]
